FAERS Safety Report 18802057 (Version 2)
Quarter: 2022Q3

REPORT INFORMATION
  Report Type: Spontaneous
  Country: CA (occurrence: CA)
  Receive Date: 20210128
  Receipt Date: 20220712
  Transmission Date: 20221027
  Serious: Yes (Death, Other)
  Sender: FDA-Public Use
  Company Number: CA-GLAXOSMITHKLINE-CA2021GSK020139

PATIENT

DRUGS (1)
  1. AVANDIA [Suspect]
     Active Substance: ROSIGLITAZONE MALEATE
     Indication: Diabetes mellitus
     Dosage: UNK, QD
     Route: 048
     Dates: start: 1999, end: 2007

REACTIONS (7)
  - Ventricular fibrillation [Fatal]
  - Cardiac arrest [Fatal]
  - End stage renal disease [Fatal]
  - Hypertension [Fatal]
  - Diabetes mellitus [Fatal]
  - Myocardial infarction [Unknown]
  - Cardiac disorder [Unknown]
